FAERS Safety Report 4626999-6 (Version None)
Quarter: 2005Q1

REPORT INFORMATION
  Report Type: 
  Country: None (occurrence: None)
  Receive Date: 20050331
  Receipt Date: 20050328
  Transmission Date: 20050727
  Serious: Yes (Disabling, Other)
  Sender: FDA-Public Use
  Company Number: 2005044716

PATIENT
  Sex: Male
  Weight: 0.22 kg

DRUGS (6)
  1. GLUCOTROL XL [Suspect]
     Indication: DIABETES MELLITUS
     Dosage: 20 MG (10 MG, 2 IN 1 D), ORAL
     Route: 048
  2. FUROSEMIDE [Concomitant]
  3. ROSIGLITAZONE MALEATE [Concomitant]
  4. ATORVASTATIN CALCIUM [Concomitant]
  5. TOLTERODINE TARTRATE [Concomitant]
  6. METOLAZONE [Concomitant]

REACTIONS (12)
  - ABASIA [None]
  - ABDOMINAL PAIN UPPER [None]
  - BLINDNESS [None]
  - BLOOD CREATININE ABNORMAL [None]
  - BLOOD UREA ABNORMAL [None]
  - BODY HEIGHT DECREASED [None]
  - DIABETES MELLITUS INADEQUATE CONTROL [None]
  - DRUG INEFFECTIVE [None]
  - FAECAL INCONTINENCE [None]
  - NEUROPATHY [None]
  - STOOL ANALYSIS ABNORMAL [None]
  - URETHRAL OBSTRUCTION [None]
